FAERS Safety Report 16606528 (Version 1)
Quarter: 2019Q3

REPORT INFORMATION
  Report Type: Spontaneous
  Country: US (occurrence: US)
  Receive Date: 20190722
  Receipt Date: 20190722
  Transmission Date: 20191004
  Serious: No
  Sender: FDA-Public Use
  Company Number: US-TEVA-2019-US-1080420

PATIENT
  Sex: Female

DRUGS (1)
  1. AJOVY [Suspect]
     Active Substance: FREMANEZUMAB-VFRM
     Dosage: MONTHLY INJECTIONS
     Dates: start: 201812

REACTIONS (3)
  - Palpitations [Unknown]
  - Asthma [Unknown]
  - Choking sensation [Unknown]

NARRATIVE: CASE EVENT DATE: 2019
